FAERS Safety Report 9348505 (Version 1)
Quarter: 2013Q2

REPORT INFORMATION
  Report Type: Spontaneous
  Country: CA (occurrence: CA)
  Receive Date: 20130614
  Receipt Date: 20130614
  Transmission Date: 20140414
  Serious: Yes (Other)
  Sender: FDA-Public Use
  Company Number: CA-ROCHE-1235731

PATIENT
  Sex: Female

DRUGS (4)
  1. NAPROSYNE [Suspect]
     Indication: PRODUCT USED FOR UNKNOWN INDICATION
     Route: 065
  2. ENBREL [Suspect]
     Indication: ANKYLOSING SPONDYLITIS
     Route: 065
     Dates: start: 20110308
  3. MEDROXYPROGESTERONE [Concomitant]
  4. CIPRO [Concomitant]

REACTIONS (3)
  - Neurosensory hypoacusis [Not Recovered/Not Resolved]
  - Tinnitus [Unknown]
  - Urinary tract infection [Unknown]
